FAERS Safety Report 5702620-0 (Version None)
Quarter: 2008Q2

REPORT INFORMATION
  Report Type: 
  Country: None (occurrence: None)
  Receive Date: 20080411
  Receipt Date: 20080401
  Transmission Date: 20081010
  Serious: Yes (Hospitalization)
  Sender: FDA-Public Use
  Company Number: US-ELI_LILLY_AND_COMPANY-US200804001267

PATIENT
  Sex: Female
  Weight: 83.9 kg

DRUGS (12)
  1. BYETTA [Suspect]
     Indication: TYPE 2 DIABETES MELLITUS
     Dosage: 5 UG, 2/D
     Route: 058
     Dates: start: 20050101, end: 20050101
  2. BYETTA [Suspect]
     Dosage: 10 UG, 2/D
     Route: 058
     Dates: start: 20050401
  3. GLUCOPHAGE [Concomitant]
     Indication: DIABETES MELLITUS
     Dosage: 1000 MG, 2/D
     Route: 048
  4. GLIMEPIRIDE [Concomitant]
     Indication: DIABETES MELLITUS
     Dosage: 2 MG, EACH MORNING
     Route: 048
  5. GLIMEPIRIDE [Concomitant]
     Dosage: 2 MG, EACH EVENING
     Route: 048
  6. HUMULIN /00646001/ [Concomitant]
     Dosage: UNK, EACH EVENING
  7. TIZANIDINE HCL [Concomitant]
     Indication: NECK PAIN
  8. LISINOPRIL [Concomitant]
     Dosage: UNK, DAILY (1/D)
     Route: 048
  9. BENZONATATE [Concomitant]
     Dosage: UNK, DAILY (1/D)
     Route: 048
  10. ISOSORBIDE DINITRATE [Concomitant]
     Dosage: 30 MG, DAILY (1/D)
     Route: 048
     Dates: start: 20071201
  11. METOPROLOL TARTRATE [Concomitant]
     Dosage: 25 MG, 2/D
     Route: 048
     Dates: start: 20071201
  12. IRON [Concomitant]

REACTIONS (11)
  - ARTERIAL OCCLUSIVE DISEASE [None]
  - ASTHENIA [None]
  - BLOOD POTASSIUM DECREASED [None]
  - DECREASED APPETITE [None]
  - DRUG INEFFECTIVE [None]
  - FATIGUE [None]
  - HAEMORRHAGE [None]
  - HUNGER [None]
  - PAROSMIA [None]
  - VASCULAR PSEUDOANEURYSM [None]
  - WEIGHT DECREASED [None]
